FAERS Safety Report 8465108-2 (Version None)
Quarter: 2012Q2

REPORT INFORMATION
  Report Type: 
  Country: None (occurrence: None)
  Receive Date: 20120626
  Receipt Date: 20120620
  Transmission Date: 20120825
  Serious: Yes (Other)
  Sender: FDA-Public Use
  Company Number: BR-BAYER-2012-061463

PATIENT
  Sex: Male
  Weight: 63.946 kg

DRUGS (8)
  1. TACROLIMUS [Concomitant]
     Indication: LIVER TRANSPLANT
     Dosage: 1 DF, QD
     Route: 048
     Dates: start: 20101127
  2. SORAFENIB (RAF KINASE INHIBITOR) [Suspect]
     Indication: HEPATIC NEOPLASM MALIGNANT
     Dosage: 400 MG, BID
     Route: 048
     Dates: start: 20080101, end: 20080101
  3. SORAFENIB (RAF KINASE INHIBITOR) [Suspect]
     Dosage: 200 MG, BID
     Route: 048
     Dates: start: 20080101, end: 20100101
  4. SORAFENIB (RAF KINASE INHIBITOR) [Suspect]
     Dosage: 2 DF, BID
     Route: 048
     Dates: start: 20120501
  5. SORAFENIB (RAF KINASE INHIBITOR) [Suspect]
     Dosage: 1 DF, BID
     Route: 048
     Dates: start: 20120409, end: 20120501
  6. AZATHIOPRINE [Concomitant]
     Indication: LIVER TRANSPLANT
     Dosage: 1 DF, QD
     Route: 048
     Dates: start: 20101127
  7. SIROLIMUS [Concomitant]
     Indication: RENAL DISORDER
     Dosage: 0.5 MG, BID
     Route: 048
     Dates: start: 20120401
  8. TACROLIMUS [Concomitant]

REACTIONS (6)
  - PRURITUS [None]
  - PALMAR-PLANTAR ERYTHRODYSAESTHESIA SYNDROME [None]
  - DYSENTERY [None]
  - WEIGHT DECREASED [None]
  - ALOPECIA [None]
  - DECREASED APPETITE [None]
